FAERS Safety Report 6348325-7 (Version None)
Quarter: 2009Q3

REPORT INFORMATION
  Report Type: 
  Country: None (occurrence: None)
  Receive Date: 20090908
  Receipt Date: 20090820
  Transmission Date: 20100115
  Serious: Yes (Hospitalization)
  Sender: FDA-Public Use
  Company Number: 2008AL006501

PATIENT
  Age: 79 Year
  Sex: Male

DRUGS (21)
  1. DIGOXIN [Suspect]
     Dosage: 0.25MG, DAILY, PO
     Route: 048
  2. WARFARIN SODIUM [Concomitant]
  3. LORAZEPAM [Concomitant]
  4. TOPROL-XL [Concomitant]
  5. NASACORT AQ [Concomitant]
  6. TEMAZEPAM [Concomitant]
  7. ALPRAZOLAM [Concomitant]
  8. GLUCOVANCE [Concomitant]
  9. AMBIEN [Concomitant]
  10. METFORMIN/GLYB [Concomitant]
  11. NIASPAN [Concomitant]
  12. METFORMIN HCL [Concomitant]
  13. JANUVIA [Concomitant]
  14. AMBIEN CR [Concomitant]
  15. METOPROLOL SUCCINATE EXTENDED RELEASE [Concomitant]
  16. OSMOPREP [Concomitant]
  17. CIPROFLAXACIN [Concomitant]
  18. PROMETHAZINE [Concomitant]
  19. HYDROCODONE BITARTRATE AND ACETAMINOPHEN [Concomitant]
  20. ZOLPIDEM [Concomitant]
  21. XANAX [Concomitant]

REACTIONS (10)
  - BRADYCARDIA [None]
  - CARDIAC DISORDER [None]
  - COLON ADENOMA [None]
  - HYPOTENSION [None]
  - INJURY [None]
  - INTERSTITIAL LUNG DISEASE [None]
  - NAUSEA [None]
  - NOCTURIA [None]
  - OSTEOARTHRITIS [None]
  - VOMITING [None]
